FAERS Safety Report 9765169 (Version 1)
Quarter: 2013Q4

REPORT INFORMATION
  Report Type: Spontaneous
  Country: US (occurrence: US)
  Receive Date: 20131217
  Receipt Date: 20131217
  Transmission Date: 20140711
  Serious: No
  Sender: FDA-Public Use
  Company Number: US-GLAXOSMITHKLINE-A1013452A

PATIENT
  Age: 75 Year
  Sex: Female

DRUGS (11)
  1. SORIATANE [Suspect]
     Indication: PSORIASIS
     Dosage: 25MG ALTERNATE DAYS
     Route: 048
     Dates: start: 20130110
  2. METHOTREXATE [Concomitant]
  3. PRILOSEC [Concomitant]
  4. LISINOPRIL + HYDROCHLOROTHIAZIDE [Concomitant]
  5. TEMAZEPAM [Concomitant]
  6. SIMVASTATIN [Concomitant]
  7. SLOW RELEASE IRON [Concomitant]
  8. FOLIC ACID [Concomitant]
  9. UNKNOWN MEDICATION [Concomitant]
  10. HERCEPTIN [Concomitant]
  11. SPIRIVA [Concomitant]

REACTIONS (2)
  - Increased appetite [Unknown]
  - Drug ineffective [Unknown]
